FAERS Safety Report 16623717 (Version 2)
Quarter: 2024Q2

REPORT INFORMATION
  Report Type: Spontaneous
  Country: CA (occurrence: CA)
  Receive Date: 20190724
  Receipt Date: 20240416
  Transmission Date: 20240716
  Serious: Yes (Other)
  Sender: FDA-Public Use
  Company Number: CA-AUROBINDO-AUR-APL-2019-041870

PATIENT
  Age: 48 Year
  Sex: Female

DRUGS (5)
  1. MONTELUKAST [Suspect]
     Active Substance: MONTELUKAST SODIUM
     Indication: Product used for unknown indication
     Dosage: 1 DOSAGE FORM, ONCE A DAY
     Route: 065
  2. XOLAIR [Suspect]
     Active Substance: OMALIZUMAB
     Indication: Chronic spontaneous urticaria
     Dosage: 300 MILLIGRAM, UNK
     Route: 058
  3. XOLAIR [Suspect]
     Active Substance: OMALIZUMAB
     Indication: Chronic spontaneous urticaria
     Dosage: 150 MILLIGRAM, UNK
     Route: 065
  4. Reactine [Concomitant]
     Indication: Product used for unknown indication
     Dosage: 1 DOSAGE FORM, DAILY
     Route: 065
  5. ZANTAC [Concomitant]
     Active Substance: RANITIDINE HYDROCHLORIDE
     Indication: Product used for unknown indication
     Dosage: 1 DOSAGE FORM, DAILY
     Route: 065

REACTIONS (13)
  - Arthralgia [Not Recovered/Not Resolved]
  - Blood pressure increased [Not Recovered/Not Resolved]
  - Heart rate increased [Not Recovered/Not Resolved]
  - Nasal congestion [Not Recovered/Not Resolved]
  - Oropharyngeal pain [Not Recovered/Not Resolved]
  - Pruritus [Not Recovered/Not Resolved]
  - Rash [Not Recovered/Not Resolved]
  - Rhinorrhoea [Not Recovered/Not Resolved]
  - Sinus pain [Not Recovered/Not Resolved]
  - Stress [Not Recovered/Not Resolved]
  - Systemic lupus erythematosus rash [Not Recovered/Not Resolved]
  - Urticaria [Not Recovered/Not Resolved]
  - Therapeutic response decreased [Not Recovered/Not Resolved]
